FAERS Safety Report 16724133 (Version 2)
Quarter: 2019Q3

REPORT INFORMATION
  Report Type: Spontaneous
  Country: CA (occurrence: CA)
  Receive Date: 20190821
  Receipt Date: 20190921
  Transmission Date: 20191005
  Serious: Yes (Hospitalization, Other)
  Sender: FDA-Public Use
  Company Number: CA-AUROBINDO-AUR-APL-2019-053969

PATIENT
  Age: 82 Year
  Sex: Male
  Weight: 74 kg

DRUGS (7)
  1. AMIODARONE [Suspect]
     Active Substance: AMIODARONE
     Indication: ATRIAL FIBRILLATION
     Dosage: UNK
     Route: 065
  2. CLOPIDOGREL [Suspect]
     Active Substance: CLOPIDOGREL BISULFATE
     Indication: DEEP VEIN THROMBOSIS
     Dosage: 75 MILLIGRAM, ONCE A DAY
     Route: 048
  3. HEPARIN [Suspect]
     Active Substance: HEPARIN SODIUM
     Indication: DEEP VEIN THROMBOSIS
     Dosage: UNK
     Route: 041
  4. RIVAROXABAN [Suspect]
     Active Substance: RIVAROXABAN
     Indication: DEEP VEIN THROMBOSIS
     Dosage: 10 MILLIGRAM, ONCE A DAY
     Route: 048
  5. ACETYLSALICYLIC ACID [Suspect]
     Active Substance: ASPIRIN
     Indication: PRODUCT USED FOR UNKNOWN INDICATION
     Dosage: 81 MILLIGRAM, ONCE A DAY
     Route: 048
  6. WARFARIN [Concomitant]
     Active Substance: WARFARIN
     Indication: PRODUCT USED FOR UNKNOWN INDICATION
     Dosage: UNK
     Route: 065
  7. ACETYLSALICYLIC ACID [Suspect]
     Active Substance: ASPIRIN
     Dosage: 325 MILLIGRAM, ONCE A DAY
     Route: 065

REACTIONS (19)
  - Facial paralysis [Recovered/Resolved]
  - Electrocardiogram ST segment depression [Recovered/Resolved]
  - Post procedural haematoma [Recovered/Resolved]
  - Dysphagia [Recovered/Resolved]
  - Haematoma [Recovered/Resolved]
  - Acute myocardial infarction [Recovered/Resolved]
  - Aphasia [Recovered/Resolved]
  - Product use in unapproved indication [Recovered/Resolved]
  - Renal injury [Recovered/Resolved]
  - Labelled drug-disease interaction medication error [Recovered/Resolved]
  - Transient ischaemic attack [Recovered/Resolved]
  - Acute kidney injury [Recovered/Resolved]
  - Confusional state [Recovered/Resolved]
  - Cerebral artery embolism [Recovered/Resolved]
  - Contraindicated product administered [Recovered/Resolved]
  - Labelled drug-drug interaction medication error [Recovered/Resolved]
  - Disease recurrence [Recovered/Resolved]
  - Hemiparesis [Recovered/Resolved]
  - Chest discomfort [Recovered/Resolved]
